FAERS Safety Report 7060357-2 (Version None)
Quarter: 2010Q4

REPORT INFORMATION
  Report Type: 
  Country: None (occurrence: None)
  Receive Date: 20101025
  Receipt Date: 20101018
  Transmission Date: 20110411
  Serious: Yes (Hospitalization)
  Sender: FDA-Public Use
  Company Number: B0680338A

PATIENT
  Sex: Female
  Weight: 39 kg

DRUGS (8)
  1. TYKERB [Suspect]
     Indication: BREAST CANCER
     Dosage: 1250MG PER DAY
     Route: 048
     Dates: start: 20091007, end: 20091208
  2. TYKERB [Suspect]
     Dosage: 1250MG PER DAY
     Route: 048
     Dates: start: 20100106
  3. XELODA [Suspect]
     Dosage: 900MG PER DAY
     Route: 048
     Dates: start: 20091007, end: 20091103
  4. XELODA [Suspect]
     Dosage: 900MG PER DAY
     Route: 048
     Dates: start: 20091118, end: 20091208
  5. XELODA [Suspect]
     Dosage: 900MG PER DAY
     Route: 048
     Dates: start: 20100120, end: 20100217
  6. XELODA [Suspect]
     Dosage: 900MG PER DAY
     Route: 048
     Dates: start: 20100303, end: 20100317
  7. XELODA [Suspect]
     Dosage: 900MG PER DAY
     Route: 048
     Dates: start: 20100331
  8. ZOMETA [Concomitant]
     Indication: BREAST CANCER
     Dosage: 4MG PER DAY
     Route: 042

REACTIONS (1)
  - HERPES ZOSTER [None]
